FAERS Safety Report 4344173-8 (Version None)
Quarter: 2004Q2

REPORT INFORMATION
  Report Type: 
  Country: None (occurrence: None)
  Receive Date: 20040422
  Receipt Date: 20001031
  Transmission Date: 20050107
  Serious: Yes (Hospitalization)
  Sender: FDA-Public Use
  Company Number: PHFR2000GB01804

PATIENT
  Age: 41 Year
  Sex: Male

DRUGS (3)
  1. CLOZARIL [Suspect]
     Indication: SCHIZOPHRENIA
     Dosage: 375MG/DAY
     Route: 048
     Dates: start: 19930225
  2. PROPRANOLOL [Concomitant]
     Indication: ANXIETY
     Dosage: 80MG/DAY
     Route: 048
  3. CIPRAMIL [Concomitant]
     Indication: DEPRESSION
     Dosage: 30MG/DAY
     Route: 048

REACTIONS (5)
  - ALCOHOL POISONING [None]
  - DIABETES MELLITUS [None]
  - DIABETES MELLITUS INSULIN-DEPENDENT [None]
  - FALL [None]
  - HYPERGLYCAEMIA [None]
